FAERS Safety Report 14459536 (Version 1)
Quarter: 2018Q1

REPORT INFORMATION
  Report Type: Spontaneous
  Country: US (occurrence: US)
  Receive Date: 20180129
  Receipt Date: 20180129
  Transmission Date: 20180509
  Serious: Yes (Other)
  Sender: FDA-Public Use
  Company Number: None

PATIENT
  Age: 66 Year
  Sex: Female
  Weight: 55.8 kg

DRUGS (15)
  1. OCUVITE OVER 50 [Concomitant]
  2. QUNOL COQ10 [Concomitant]
  3. VITAMIN D [Suspect]
     Active Substance: CHOLECALCIFEROL
  4. CRESTOR [Concomitant]
     Active Substance: ROSUVASTATIN CALCIUM
  5. SLOMAG [Concomitant]
  6. CENTRUM SILVER [Suspect]
     Active Substance: MINERALS\VITAMINS
  7. MOVE FREE (JOINTS) [Concomitant]
  8. COGNIUM [Concomitant]
  9. RESTASIS [Concomitant]
     Active Substance: CYCLOSPORINE
  10. CITRACAL CALCIUM [Concomitant]
  11. ALAIGN PROBIOTIC [Concomitant]
  12. BONITA [Concomitant]
     Active Substance: CHLORMADINONE ACETATE\ETHINYL ESTRADIOL
  13. REVESTEROL [Concomitant]
  14. LEVOFLOXACIN TABLET 500 MG [Suspect]
     Active Substance: LEVOFLOXACIN
     Indication: NASOPHARYNGITIS
     Dosage: ?          QUANTITY:1 TABLET(S);?
     Route: 048
     Dates: start: 20180122, end: 20180124
  15. LATANOPROST. [Concomitant]
     Active Substance: LATANOPROST

REACTIONS (2)
  - Urinary incontinence [None]
  - Sensation of foreign body [None]

NARRATIVE: CASE EVENT DATE: 20180122
